FAERS Safety Report 18997849 (Version 1)
Quarter: 2021Q1

REPORT INFORMATION
  Report Type: Other
  Country: US (occurrence: GB)
  Receive Date: 20210311
  Receipt Date: 20210311
  Transmission Date: 20210420
  Serious: Yes (Hospitalization, Other)
  Sender: FDA-Public Use
  Company Number: GB-BRECKENRIDGE PHARMACEUTICAL, INC.-2107857

PATIENT
  Age: 69 Year
  Sex: Male

DRUGS (7)
  1. ASPIRIN. [Concomitant]
     Active Substance: ASPIRIN
  2. PROVERA [Concomitant]
     Active Substance: MEDROXYPROGESTERONE ACETATE
  3. RAMIPRIL. [Concomitant]
     Active Substance: RAMIPRIL
  4. ADCAL?D3 (COLECALCIFEROL; CALCIUM CARBONATE); [Concomitant]
  5. ZOLADEX [Suspect]
     Active Substance: GOSERELIN ACETATE
  6. CLOPIDOGREL [Concomitant]
     Active Substance: CLOPIDOGREL BISULFATE
  7. OMEPRAZOLE. [Suspect]
     Active Substance: OMEPRAZOLE

REACTIONS (4)
  - Arrhythmia [None]
  - General physical condition abnormal [None]
  - Drug ineffective [None]
  - Myocardial infarction [None]
